FAERS Safety Report 10103232 (Version 2)
Quarter: 2014Q2

REPORT INFORMATION
  Report Type: Spontaneous
  Country: US (occurrence: US)
  Receive Date: 20140424
  Receipt Date: 20140424
  Transmission Date: 20141212
  Serious: No
  Sender: FDA-Public Use
  Company Number: US-BRISTOL-MYERS SQUIBB COMPANY-20199378

PATIENT
  Age: 77 Year
  Sex: Male
  Weight: 79.36 kg

DRUGS (1)
  1. ELIQUIS [Suspect]
     Indication: ATRIAL FIBRILLATION
     Dates: start: 201402

REACTIONS (2)
  - Dyspnoea [Recovered/Resolved]
  - Drug dose omission [Unknown]
